FAERS Safety Report 16803416 (Version 3)
Quarter: 2020Q2

REPORT INFORMATION
  Report Type: Report from Study
  Country: FR (occurrence: FR)
  Receive Date: 20190913
  Receipt Date: 20200522
  Transmission Date: 20200713
  Serious: Yes (Other)
  Sender: FDA-Public Use
  Company Number: FR-BEH-2019106902

PATIENT

DRUGS (1)
  1. FIBROGAMMIN P [Suspect]
     Active Substance: FACTOR XIII CONCENTRATE (HUMAN)
     Indication: PRODUCT USED FOR UNKNOWN INDICATION
     Route: 064

REACTIONS (3)
  - Death neonatal [Fatal]
  - Maternal exposure during pregnancy [Fatal]
  - Premature baby [Fatal]
